FAERS Safety Report 9656712 (Version 1)
Quarter: 2013Q4

REPORT INFORMATION
  Report Type: Spontaneous
  Country: US (occurrence: None)
  Receive Date: 20131029
  Receipt Date: 20131029
  Transmission Date: 20140711
  Serious: Yes (Hospitalization)
  Sender: FDA-Public Use
  Company Number: None

PATIENT
  Age: 53 Year
  Sex: Female
  Weight: 122.2 kg

DRUGS (15)
  1. PROLEUKIN [Suspect]
     Indication: METASTATIC RENAL CELL CARCINOMA
     Route: 042
     Dates: start: 20131007, end: 20131009
  2. APREPITANT [Suspect]
     Route: 042
     Dates: start: 20131007, end: 20131009
  3. MAGNESIUM SULFATE [Concomitant]
  4. ONDANSETRON [Concomitant]
  5. FOSAPREPITANT/PLACEBO [Concomitant]
  6. HDIL-2 IV [Concomitant]
  7. CEPHALEXIN [Concomitant]
  8. GABAPENTIN [Concomitant]
  9. FENTANYL [Concomitant]
  10. HEPARIN [Concomitant]
  11. FAMOTIDINE [Concomitant]
  12. CELECOXIB [Concomitant]
  13. SALIVA SUBSTITUTE [Concomitant]
  14. NACL [Concomitant]
  15. OXYCODONE [Concomitant]

REACTIONS (8)
  - Urine output decreased [None]
  - Blood creatinine increased [None]
  - Mental status changes [None]
  - Hypopnoea [None]
  - Respiratory rate increased [None]
  - Gastrointestinal haemorrhage [None]
  - Haematemesis [None]
  - Disseminated intravascular coagulation [None]
